FAERS Safety Report 19193534 (Version 5)
Quarter: 2022Q2

REPORT INFORMATION
  Report Type: Report from Study
  Country: US (occurrence: US)
  Receive Date: 20210428
  Receipt Date: 20220409
  Transmission Date: 20220720
  Serious: No
  Sender: FDA-Public Use
  Company Number: NVSC2021US096136

PATIENT
  Sex: Male

DRUGS (3)
  1. ENTRESTO [Suspect]
     Active Substance: SACUBITRIL\VALSARTAN
     Indication: Product used for unknown indication
     Dosage: UNK UNK, BID
     Route: 048
  2. ENTRESTO [Suspect]
     Active Substance: SACUBITRIL\VALSARTAN
     Dosage: 0.5 DF (HALF OF A 24/26MG PILL IN AM AND PM), BID
     Route: 048
  3. ENTRESTO [Suspect]
     Active Substance: SACUBITRIL\VALSARTAN
     Dosage: UNK
     Route: 048

REACTIONS (12)
  - Dry skin [Unknown]
  - Balance disorder [Unknown]
  - Sensory disturbance [Unknown]
  - Asthenia [Unknown]
  - Back pain [Unknown]
  - Prescribed underdose [Unknown]
  - Fatigue [Unknown]
  - Nightmare [Unknown]
  - Poor quality sleep [Unknown]
  - Dysstasia [Unknown]
  - Hypotension [Unknown]
  - Wrong technique in product usage process [Unknown]
